FAERS Safety Report 7161533-0 (Version None)
Quarter: 2010Q4

REPORT INFORMATION
  Report Type: 
  Country: None (occurrence: None)
  Receive Date: 20101215
  Receipt Date: 20101207
  Transmission Date: 20110411
  Serious: Yes (Death, Hospitalization)
  Sender: FDA-Public Use
  Company Number: US-CELGENEUS-163-21880-10111547

PATIENT
  Sex: Female

DRUGS (13)
  1. REVLIMID [Suspect]
     Route: 048
     Dates: start: 20101027
  2. COMPAZINE [Concomitant]
     Indication: NAUSEA
     Route: 048
  3. ALDACTONE [Concomitant]
     Dosage: 12.5 OR 25 MG
     Route: 048
  4. CIPRO [Concomitant]
     Route: 048
  5. COREG [Concomitant]
     Route: 048
  6. DIGOXIN [Concomitant]
     Route: 048
  7. DIOVAN [Concomitant]
     Indication: BLOOD PRESSURE
     Route: 048
  8. KLOR-CON [Concomitant]
     Route: 048
  9. LASIX [Concomitant]
     Route: 048
  10. MAGNESIUM OXIDE [Concomitant]
     Route: 048
  11. ULTRAM EXTENDED RELEASE [Concomitant]
     Route: 048
  12. VALTREX [Concomitant]
     Route: 048
  13. DARVON [Concomitant]
     Route: 065

REACTIONS (1)
  - ACUTE MYELOID LEUKAEMIA [None]
